FAERS Safety Report 7057786-X (Version None)
Quarter: 2010Q4

REPORT INFORMATION
  Report Type: 
  Country: None (occurrence: None)
  Receive Date: 20101022
  Receipt Date: 20101015
  Transmission Date: 20110411
  Serious: Yes (Other)
  Sender: FDA-Public Use
  Company Number: US-PFIZER INC-2010123231

PATIENT
  Sex: Female
  Weight: 62 kg

DRUGS (2)
  1. VFEND [Suspect]
     Indication: MYCOBACTERIUM AVIUM COMPLEX INFECTION
     Dosage: 200 MG, 2X/DAY
     Route: 048
     Dates: start: 20100512
  2. ADVAIR DISKUS 100/50 [Concomitant]
     Indication: MYCOBACTERIUM AVIUM COMPLEX INFECTION
     Dosage: UNK

REACTIONS (3)
  - GOUT [None]
  - JOINT SPRAIN [None]
  - JOINT SWELLING [None]
